FAERS Safety Report 17459681 (Version 1)
Quarter: 2020Q1

REPORT INFORMATION
  Report Type: Report from Study
  Country: US (occurrence: US)
  Receive Date: 20200225
  Receipt Date: 20200225
  Transmission Date: 20200409
  Serious: Yes (Other)
  Sender: FDA-Public Use
  Company Number: US-CELGENEUS-USA-20200206055

PATIENT
  Age: 56 Year
  Sex: Male
  Weight: 62.38 kg

DRUGS (11)
  1. REVLIMID [Suspect]
     Active Substance: LENALIDOMIDE
     Indication: PLASMA CELL MYELOMA
     Dosage: 25 MILLIGRAM
     Route: 048
     Dates: start: 20101028, end: 20111208
  2. BORTEZOMIB. [Concomitant]
     Active Substance: BORTEZOMIB
     Indication: PLASMA CELL MYELOMA
     Dosage: 1.3 MILLIGRAM/SQ. METER
     Route: 041
     Dates: start: 20101014, end: 20111208
  3. DEXAMETHASONE ORAL [Concomitant]
     Active Substance: DEXAMETHASONE
     Dosage: 20 MILLIGRAM
     Route: 048
     Dates: start: 20170214, end: 20170628
  4. KYPROLIS [Concomitant]
     Active Substance: CARFILZOMIB
     Indication: PLASMA CELL MYELOMA
     Dosage: 20 MILLIGRAM/SQ. METER
     Route: 041
     Dates: start: 20170214, end: 20170628
  5. POMALYST [Suspect]
     Active Substance: POMALIDOMIDE
     Dosage: 4 MILLIGRAM
     Route: 048
     Dates: start: 20170214, end: 20170628
  6. MELPHALAN. [Concomitant]
     Active Substance: MELPHALAN
     Indication: PLASMA CELL MYELOMA
     Dosage: 200 MILLIGRAM/SQ. METER
     Route: 041
     Dates: start: 20111222, end: 20111222
  7. POMALYST [Suspect]
     Active Substance: POMALIDOMIDE
     Dosage: 2 MILLIGRAM
     Route: 048
     Dates: start: 20171121, end: 20181127
  8. POMALYST [Suspect]
     Active Substance: POMALIDOMIDE
     Indication: PLASMA CELL MYELOMA
     Dosage: 1 MILLIGRAM
     Route: 048
     Dates: start: 20181128
  9. REVLIMID [Suspect]
     Active Substance: LENALIDOMIDE
     Dosage: 10 MILLIGRAM
     Route: 048
     Dates: start: 20120425, end: 20170213
  10. DEXAMETHASONE ORAL [Concomitant]
     Active Substance: DEXAMETHASONE
     Indication: PLASMA CELL MYELOMA
     Dosage: 20 MILLIGRAM
     Route: 048
     Dates: start: 20101014, end: 20111208
  11. KYPROLIS [Concomitant]
     Active Substance: CARFILZOMIB
     Dosage: 27 MILLIGRAM/SQ. METER
     Route: 041
     Dates: start: 20170214, end: 20170628

REACTIONS (1)
  - Bowen^s disease [Recovered/Resolved]

NARRATIVE: CASE EVENT DATE: 20191122
